FAERS Safety Report 26160781 (Version 1)
Quarter: 2025Q4

REPORT INFORMATION
  Report Type: Report from Study
  Country: US (occurrence: US)
  Receive Date: 20251216
  Receipt Date: 20251216
  Transmission Date: 20260117
  Serious: Yes (Other)
  Sender: ABBVIE
  Company Number: US-ABBVIE-6497939

PATIENT
  Age: 26 Year
  Sex: Male

DRUGS (2)
  1. RINVOQ [Suspect]
     Active Substance: UPADACITINIB
     Indication: Eczema
     Dosage: STRENGTH: 15 MG
     Route: 048
     Dates: start: 20250817, end: 2025
  2. RINVOQ [Suspect]
     Active Substance: UPADACITINIB
     Indication: Eczema
     Dosage: STRENGTH: 15 MG
     Route: 048
     Dates: start: 2025

REACTIONS (17)
  - Nephrolithiasis [Unknown]
  - Hyperhidrosis [Unknown]
  - Back pain [Unknown]
  - Cough [Recovered/Resolved]
  - Hypertension [Not Recovered/Not Resolved]
  - Sinusitis [Recovering/Resolving]
  - Rhinorrhoea [Recovering/Resolving]
  - Oropharyngeal pain [Recovering/Resolving]
  - Upper-airway cough syndrome [Recovering/Resolving]
  - Respiratory disorder [Recovering/Resolving]
  - Cough [Not Recovered/Not Resolved]
  - Tendon injury [Recovered/Resolved]
  - Arthralgia [Recovered/Resolved]
  - Road traffic accident [Unknown]
  - Migraine [Unknown]
  - Myositis [Unknown]
  - Respiratory tract irritation [Recovering/Resolving]

NARRATIVE: CASE EVENT DATE: 20250101
